FAERS Safety Report 8113985-7 (Version None)
Quarter: 2012Q1

REPORT INFORMATION
  Report Type: 
  Country: None (occurrence: None)
  Receive Date: 20120203
  Receipt Date: 20120109
  Transmission Date: 20120608
  Serious: Yes (Hospitalization)
  Sender: FDA-Public Use
  Company Number: GB-MERCK-1201GBR00027

PATIENT
  Age: 51 Year
  Sex: Male

DRUGS (2)
  1. SINGULAIR [Suspect]
     Route: 048
  2. SINGULAIR [Suspect]
     Route: 048

REACTIONS (2)
  - OVERDOSE [None]
  - CHRONIC OBSTRUCTIVE PULMONARY DISEASE [None]
